FAERS Safety Report 12099520 (Version 1)
Quarter: 2016Q1

REPORT INFORMATION
  Report Type: Spontaneous
  Country: US (occurrence: None)
  Receive Date: 20160219
  Receipt Date: 20160219
  Transmission Date: 20160526
  Serious: No
  Sender: FDA-Public Use
  Company Number: None

PATIENT
  Age: 66 Year
  Sex: Female
  Weight: 99.79 kg

DRUGS (13)
  1. LISINOPRIL. [Suspect]
     Active Substance: LISINOPRIL
     Indication: HYPERTENSION
     Dosage: 40 MG.... 1, 1 DAILY, BY MOUTH
     Route: 048
     Dates: start: 200203
  2. LOSARTAN. [Concomitant]
     Active Substance: LOSARTAN
  3. NIFEDIPINE. [Concomitant]
     Active Substance: NIFEDIPINE
  4. VITAMIN D3 [Concomitant]
     Active Substance: CHOLECALCIFEROL
  5. METOPROLOL. [Suspect]
     Active Substance: METOPROLOL
  6. TRIAMTERONE [Concomitant]
  7. CENTRUM FOR WOMEN [Concomitant]
     Active Substance: VITAMINS
  8. TYLENOL [Concomitant]
     Active Substance: ACETAMINOPHEN
  9. ALEVA [Concomitant]
  10. LISINOPRIL. [Suspect]
     Active Substance: LISINOPRIL
     Indication: ISCHAEMIC HEART DISEASE PROPHYLAXIS
     Dosage: 40 MG.... 1, 1 DAILY, BY MOUTH
     Route: 048
     Dates: start: 200203
  11. BAYER ASPIRIN [Concomitant]
     Active Substance: ASPIRIN
  12. POTASSIUM [Concomitant]
     Active Substance: POTASSIUM
  13. VITAMIN C [Concomitant]
     Active Substance: ASCORBIC ACID

REACTIONS (6)
  - Weight increased [None]
  - Nausea [None]
  - Dry skin [None]
  - Back pain [None]
  - Swelling [None]
  - Cough [None]

NARRATIVE: CASE EVENT DATE: 201301
